FAERS Safety Report 13982112 (Version 1)
Quarter: 2017Q3

REPORT INFORMATION
  Report Type: Spontaneous
  Country: GB (occurrence: GB)
  Receive Date: 20170918
  Receipt Date: 20170918
  Transmission Date: 20171128
  Serious: Yes (Hospitalization)
  Sender: FDA-Public Use
  Company Number: GB-TEVA-805471ACC

PATIENT
  Age: 88 Year
  Sex: Male

DRUGS (6)
  1. ASPIRIN COATED [Suspect]
     Active Substance: ASPIRIN
     Dosage: 75 MILLIGRAM DAILY;
     Route: 048
     Dates: end: 20170824
  2. BENDROFLUMETHIAZIDE [Concomitant]
     Active Substance: BENDROFLUMETHIAZIDE
  3. IBUPROFEN. [Suspect]
     Active Substance: IBUPROFEN
     Indication: BACK PAIN
     Dosage: APPLY UP TO THREE TIMES A DAY
     Route: 061
     Dates: start: 20170727, end: 20170824
  4. PERINDOPRIL [Concomitant]
     Active Substance: PERINDOPRIL
  5. CLOBAZAM [Concomitant]
     Active Substance: CLOBAZAM
  6. SIMVASTATIN. [Concomitant]
     Active Substance: SIMVASTATIN

REACTIONS (3)
  - Faeces discoloured [Unknown]
  - Duodenal ulcer haemorrhage [Recovering/Resolving]
  - Abdominal pain upper [Unknown]

NARRATIVE: CASE EVENT DATE: 20170821
